FAERS Safety Report 9102998 (Version 2)
Quarter: 2013Q1

REPORT INFORMATION
  Report Type: Spontaneous
  Country: US (occurrence: US)
  Receive Date: 20130219
  Receipt Date: 20130325
  Transmission Date: 20140127
  Serious: Yes (Hospitalization)
  Sender: FDA-Public Use
  Company Number: PHEH2013US004075

PATIENT
  Sex: Female

DRUGS (1)
  1. TOBI [Suspect]
     Dosage: 300 MG, BID

REACTIONS (1)
  - Gastrointestinal haemorrhage [Unknown]
